FAERS Safety Report 18655271 (Version 2)
Quarter: 2021Q2

REPORT INFORMATION
  Report Type: Spontaneous
  Country: US (occurrence: US)
  Receive Date: 20201223
  Receipt Date: 20210525
  Transmission Date: 20210717
  Serious: No
  Sender: FDA-Public Use
  Company Number: US-SA-2020SA367792

PATIENT
  Age: 42 Year
  Sex: Male

DRUGS (2)
  1. DUPIXENT [Suspect]
     Active Substance: DUPILUMAB
     Dosage: 300 MG, QOW
     Route: 058
     Dates: start: 2020
  2. DUPIXENT [Suspect]
     Active Substance: DUPILUMAB
     Indication: DERMATITIS ATOPIC
     Dosage: 600 MG, 1X (TOTAL)
     Route: 058
     Dates: start: 202011, end: 202011

REACTIONS (4)
  - Erythema [Unknown]
  - Dry skin [Unknown]
  - Intentional dose omission [Unknown]
  - Pruritus [Unknown]

NARRATIVE: CASE EVENT DATE: 2020
